FAERS Safety Report 7347356-8 (Version None)
Quarter: 2011Q1

REPORT INFORMATION
  Report Type: 
  Country: None (occurrence: None)
  Receive Date: 20110311
  Receipt Date: 20110308
  Transmission Date: 20110831
  Serious: Yes (Hospitalization)
  Sender: FDA-Public Use
  Company Number: US-GENZYME-CAMP-1000340

PATIENT
  Sex: Female

DRUGS (15)
  1. CAMPATH [Suspect]
     Indication: MULTIPLE SCLEROSIS
     Dosage: 24 MG, QD
     Route: 042
     Dates: start: 20081020, end: 20081024
  2. CELEBREX [Concomitant]
     Indication: OSTEOARTHRITIS
     Dosage: UNK UNK, UNK
     Route: 065
     Dates: start: 19960101
  3. POTASSIUM CHLORIDE [Concomitant]
     Indication: OEDEMA PERIPHERAL
     Dosage: UNK UNK, UNK
     Route: 065
     Dates: start: 20060101, end: 20101101
  4. BACLOFEN [Concomitant]
     Indication: MUSCLE SPASMS
     Dosage: UNK UNK, UNK
     Route: 065
     Dates: start: 20060101, end: 20100201
  5. SYNTHROID [Concomitant]
     Indication: HYPOTHYROIDISM
     Dosage: UNK UNK, UNK
     Route: 065
     Dates: start: 19840101
  6. TRIAMTERENE AND HYDROCHLOROTHIAZIDE [Concomitant]
     Indication: OEDEMA PERIPHERAL
     Dosage: UNK UNK, UNK
     Route: 065
     Dates: start: 20060101
  7. SPIRIVA [Concomitant]
     Indication: ASTHMA
     Dosage: UNK UNK, UNK
     Route: 065
     Dates: start: 20040101
  8. CAMPATH [Suspect]
     Dosage: 24 MG, QDX3
     Route: 042
     Dates: start: 20091021, end: 20091023
  9. SINGULAIR [Concomitant]
     Indication: ASTHMA
     Dosage: UNK UNK, UNK
     Route: 065
     Dates: start: 19980101
  10. VERAPAMIL [Concomitant]
     Indication: HYPERTENSION
     Dosage: UNK UNK, UNK
     Route: 065
     Dates: start: 20030101
  11. SOMA [Concomitant]
     Indication: MUSCLE SPASMS
     Dosage: UNK UNK, UNK
     Route: 065
     Dates: start: 20060101, end: 20100201
  12. TIZANIDINE [Concomitant]
     Indication: MUSCLE SPASMS
     Dosage: UNK UNK, UNK
     Route: 065
     Dates: start: 20060101
  13. ATIVAN [Concomitant]
     Indication: ANXIETY
     Dosage: UNK UNK, UNK
     Route: 065
     Dates: start: 20070101
  14. VYTORIN [Concomitant]
     Indication: HYPERLIPIDAEMIA
     Dosage: UNK UNK, UNK
     Route: 065
     Dates: start: 20060101
  15. PROVIGIL [Concomitant]
     Indication: FATIGUE
     Dosage: UNK UNK, UNK
     Route: 065
     Dates: start: 20060101

REACTIONS (1)
  - DIVERTICULITIS [None]
